FAERS Safety Report 5520975-7 (Version None)
Quarter: 2007Q4

REPORT INFORMATION
  Report Type: 
  Country: None (occurrence: None)
  Receive Date: 20071119
  Receipt Date: 20071105
  Transmission Date: 20080405
  Serious: Yes (Hospitalization)
  Sender: FDA-Public Use
  Company Number: DE-ROCHE-522358

PATIENT
  Age: 55 Year
  Sex: Male
  Weight: 79 kg

DRUGS (1)
  1. ROCEPHIN [Suspect]
     Indication: NEUROBORRELIOSIS
     Dosage: FORM RPTD AS INFUSION.
     Route: 065

REACTIONS (2)
  - HYPOACUSIS [None]
  - TINNITUS [None]
